FAERS Safety Report 21015184 (Version 1)
Quarter: 2022Q2

REPORT INFORMATION
  Report Type: Spontaneous
  Country: US (occurrence: US)
  Receive Date: 20220628
  Receipt Date: 20220628
  Transmission Date: 20220721
  Serious: No
  Sender: FDA-Public Use
  Company Number: US-BRISTOL-MYERS SQUIBB COMPANY-2022-060957

PATIENT
  Age: 75 Year
  Sex: Female
  Weight: 57.15 kg

DRUGS (2)
  1. ELIQUIS [Suspect]
     Active Substance: APIXABAN
     Indication: Cerebrovascular accident prophylaxis
     Route: 048
     Dates: start: 20220405
  2. CARDIZEM [Suspect]
     Active Substance: DILTIAZEM HYDROCHLORIDE
     Indication: Product used for unknown indication
     Dates: start: 20220405

REACTIONS (4)
  - Pruritus [Unknown]
  - Platelet count increased [Unknown]
  - Product after taste [Unknown]
  - Cough [Unknown]

NARRATIVE: CASE EVENT DATE: 20220101
